FAERS Safety Report 4755514-1 (Version None)
Quarter: 2005Q3

REPORT INFORMATION
  Report Type: 
  Country: None (occurrence: None)
  Receive Date: 20050830
  Receipt Date: 20050421
  Transmission Date: 20060218
  Serious: Yes (Hospitalization)
  Sender: FDA-Public Use
  Company Number: US-BRISTOL-MYERS SQUIBB COMPANY-12942165

PATIENT
  Age: 14 Year
  Sex: Female

DRUGS (3)
  1. ABILIFY [Suspect]
     Indication: BIPOLAR I DISORDER
     Dosage: VARYING DOSES
     Route: 048
     Dates: start: 20041013
  2. WELLBUTRIN XL [Concomitant]
  3. STRATTERA [Concomitant]

REACTIONS (4)
  - AGGRESSION [None]
  - COMPLEX PARTIAL SEIZURES [None]
  - EYE MOVEMENT DISORDER [None]
  - TREMOR [None]
